FAERS Safety Report 5810245-1 (Version None)
Quarter: 2008Q3

REPORT INFORMATION
  Report Type: 
  Country: None (occurrence: None)
  Receive Date: 20080715
  Receipt Date: 20071231
  Transmission Date: 20090109
  Serious: No
  Sender: FDA-Public Use
  Company Number: A0701473A

PATIENT
  Sex: Female

DRUGS (2)
  1. IMITREX [Suspect]
     Indication: MIGRAINE
     Dosage: 100MG UNKNOWN
     Route: 048
  2. IMITREX [Suspect]
     Dosage: 6MG UNKNOWN

REACTIONS (2)
  - BLOOD PRESSURE INCREASED [None]
  - PAIN IN EXTREMITY [None]
